FAERS Safety Report 9492885 (Version 1)
Quarter: 2013Q3

REPORT INFORMATION
  Report Type: Spontaneous
  Country: BR (occurrence: BR)
  Receive Date: 20130901
  Receipt Date: 20130901
  Transmission Date: 20140515
  Serious: Yes (Death)
  Sender: FDA-Public Use
  Company Number: BR-PFIZER INC-2013249655

PATIENT
  Age: 93 Year
  Sex: Male

DRUGS (1)
  1. CELEBRA [Suspect]
     Dosage: 2X/DAY
     Route: 048
     Dates: start: 2000

REACTIONS (1)
  - Cardiac arrest [Fatal]
